FAERS Safety Report 4824641-2 (Version None)
Quarter: 2005Q4

REPORT INFORMATION
  Report Type: 
  Country: None (occurrence: None)
  Receive Date: 20051012
  Receipt Date: 20050714
  Transmission Date: 20060501
  Serious: No
  Sender: FDA-Public Use
  Company Number: 2005S1000158

PATIENT

DRUGS (4)
  1. CUBICIN [Suspect]
     Indication: BLOOD CULTURE POSITIVE
  2. CUBICIN [Suspect]
     Indication: CULTURE POSITIVE
  3. CUBICIN [Suspect]
     Indication: PATHOGEN RESISTANCE
  4. CUBICIN [Suspect]
     Indication: STAPHYLOCOCCAL INFECTION

REACTIONS (2)
  - EOSINOPHIL COUNT INCREASED [None]
  - NEUTROPENIA [None]
